FAERS Safety Report 10044127 (Version 2)
Quarter: 2014Q2

REPORT INFORMATION
  Report Type: Spontaneous
  Country: US (occurrence: US)
  Receive Date: 20140328
  Receipt Date: 20140507
  Transmission Date: 20141212
  Serious: Yes (Hospitalization, Other)
  Sender: FDA-Public Use
  Company Number: US-BIOMARINAP-US-2014-102898

PATIENT
  Age: 30 Year
  Sex: Female

DRUGS (8)
  1. ALDURAZYME [Suspect]
     Indication: MUCOPOLYSACCHARIDOSIS I
     Dosage: 37.9 MG, QW
     Route: 042
     Dates: start: 200505
  2. TOPAMAX [Concomitant]
     Indication: PRODUCT USED FOR UNKNOWN INDICATION
  3. BISOPROLOL [Concomitant]
     Indication: CARDIAC DISORDER
  4. LASIX                              /00032601/ [Concomitant]
     Indication: CARDIAC DISORDER
  5. SPIRONOLACTONE [Concomitant]
     Indication: CARDIAC DISORDER
  6. ZOFRAN                             /00955301/ [Concomitant]
     Indication: PRODUCT USED FOR UNKNOWN INDICATION
  7. HYDROCORTISONE [Concomitant]
     Indication: PRODUCT USED FOR UNKNOWN INDICATION
  8. SOLUCORTEF [Concomitant]
     Indication: PREMEDICATION

REACTIONS (2)
  - Device malfunction [Unknown]
  - Hydrocephalus [Not Recovered/Not Resolved]
